FAERS Safety Report 9684105 (Version 1)
Quarter: 2013Q4

REPORT INFORMATION
  Report Type: Spontaneous
  Country: US (occurrence: None)
  Receive Date: 20131111
  Receipt Date: 20131111
  Transmission Date: 20140711
  Serious: Yes (Other)
  Sender: FDA-Public Use
  Company Number: None

PATIENT
  Age: 80 Year
  Sex: Female
  Weight: 74.39 kg

DRUGS (1)
  1. SIMVASTATIN [Suspect]
     Indication: BLOOD CHOLESTEROL
     Route: 048
     Dates: start: 20071225, end: 20131106

REACTIONS (6)
  - Neuropathy peripheral [None]
  - Constipation [None]
  - Insomnia [None]
  - Pain [None]
  - Swelling face [None]
  - Pruritus [None]
